FAERS Safety Report 6489368-2 (Version None)
Quarter: 2009Q4

REPORT INFORMATION
  Report Type: 
  Country: None (occurrence: None)
  Receive Date: 20091210
  Receipt Date: 20091009
  Transmission Date: 20100525
  Serious: No
  Sender: FDA-Public Use
  Company Number: US-AMGEN-KDL368545

PATIENT
  Sex: Female

DRUGS (2)
  1. ENBREL [Suspect]
     Indication: RHEUMATOID ARTHRITIS
     Route: 058
     Dates: start: 20070827
  2. INFLUENZA VACCINE [Concomitant]

REACTIONS (5)
  - CHILLS [None]
  - MIDDLE EAR EFFUSION [None]
  - PAIN [None]
  - SINUSITIS [None]
  - SPUTUM DISCOLOURED [None]
